FAERS Safety Report 5250364-4 (Version None)
Quarter: 2007Q1

REPORT INFORMATION
  Report Type: 
  Country: None (occurrence: None)
  Receive Date: 20070228
  Receipt Date: 20060502
  Transmission Date: 20070707
  Serious: No
  Sender: FDA-Public Use
  Company Number: US-GLAXOSMITHKLINE-A0600129A

PATIENT
  Age: 14 Year
  Sex: Female
  Weight: 119.1 kg

DRUGS (2)
  1. LAMICTAL [Suspect]
     Indication: BIPOLAR DISORDER
     Dosage: 100MG PER DAY
     Route: 048
     Dates: start: 20051201
  2. TRILEPTAL [Suspect]
     Indication: BIPOLAR DISORDER
     Dosage: 600MG TWICE PER DAY
     Route: 048
     Dates: start: 20050801, end: 20060401

REACTIONS (2)
  - DRUG INTERACTION [None]
  - EPISTAXIS [None]
